FAERS Safety Report 6639493-8 (Version None)
Quarter: 2010Q1

REPORT INFORMATION
  Report Type: 
  Country: None (occurrence: None)
  Receive Date: 20100318
  Receipt Date: 20100308
  Transmission Date: 20100710
  Serious: Yes (Other)
  Sender: FDA-Public Use
  Company Number: DE-JNJFOC-20100302179

PATIENT
  Sex: Female

DRUGS (2)
  1. DAKTAR [Suspect]
     Route: 048
  2. DAKTAR [Suspect]
     Indication: FUNGAL INFECTION
     Route: 048

REACTIONS (4)
  - GLOSSITIS [None]
  - TONGUE DISCOLOURATION [None]
  - TONGUE DISORDER [None]
  - TONGUE HAEMORRHAGE [None]
